FAERS Safety Report 17160293 (Version 1)
Quarter: 2019Q4

REPORT INFORMATION
  Report Type: Spontaneous
  Country: IT (occurrence: IT)
  Receive Date: 20191216
  Receipt Date: 20191216
  Transmission Date: 20200122
  Serious: Yes (Congenital Anomaly, Other)
  Sender: FDA-Public Use
  Company Number: IT-MYLANLABS-2019M1122869

PATIENT
  Age: 2 Day
  Sex: Female

DRUGS (1)
  1. NIFEDIPINE. [Suspect]
     Active Substance: NIFEDIPINE
     Indication: HYPERTENSION
     Dosage: 2 DOSAGES 20 MG DAILY
     Route: 064

REACTIONS (2)
  - Aplasia cutis congenita [Recovered/Resolved]
  - Foetal exposure during pregnancy [Recovered/Resolved]
